FAERS Safety Report 5206546-0 (Version None)
Quarter: 2006Q4

REPORT INFORMATION
  Report Type: 
  Country: None (occurrence: None)
  Receive Date: 20061026
  Receipt Date: 20060901
  Transmission Date: 20070319
  Serious: No
  Sender: FDA-Public Use
  Company Number: 2006107291

PATIENT
  Age: 69 Year
  Sex: Female
  Weight: 49.8957 kg

DRUGS (6)
  1. LYRICA [Suspect]
     Indication: NEUROPATHY
     Dosage: 50 MG AT DINNER; 25MG AT BEDTIME (2 IN 1 D)
     Dates: start: 20060101
  2. PAMELOR [Concomitant]
  3. VALIUM [Concomitant]
  4. VISTARIL [Concomitant]
  5. EVISTA [Concomitant]
  6. ELMIRON [Concomitant]

REACTIONS (2)
  - BALANCE DISORDER [None]
  - FEELING ABNORMAL [None]
